FAERS Safety Report 7991787-X (Version None)
Quarter: 2011Q4

REPORT INFORMATION
  Report Type: 
  Country: None (occurrence: None)
  Receive Date: 20111219
  Receipt Date: 20111206
  Transmission Date: 20120403
  Serious: Yes (Life-Threatening, Hospitalization)
  Sender: FDA-Public Use
  Company Number: US-MYLANLABS-2011S1025412

PATIENT
  Age: 51 Year
  Sex: Female

DRUGS (2)
  1. DIPHENHYDRAMINE HCL [Concomitant]
     Route: 065
  2. BUPROPION HCL [Suspect]
     Route: 048

REACTIONS (16)
  - HYPOTENSION [None]
  - PNEUMONIA ASPIRATION [None]
  - SEPSIS [None]
  - CARDIOGENIC SHOCK [None]
  - RENAL FAILURE ACUTE [None]
  - ELECTROCARDIOGRAM QRS COMPLEX PROLONGED [None]
  - CONVULSION [None]
  - COLITIS [None]
  - GASTROINTESTINAL HAEMORRHAGE [None]
  - MENTAL STATUS CHANGES [None]
  - TOXICITY TO VARIOUS AGENTS [None]
  - VENTRICULAR TACHYCARDIA [None]
  - HEPATIC FAILURE [None]
  - THROMBOCYTOPENIA [None]
  - RENAL TUBULAR NECROSIS [None]
  - LETHARGY [None]
